FAERS Safety Report 25304950 (Version 2)
Quarter: 2025Q2

REPORT INFORMATION
  Report Type: Spontaneous
  Country: GB (occurrence: GB)
  Receive Date: 20250513
  Receipt Date: 20250527
  Transmission Date: 20250717
  Serious: Yes (Life-Threatening, Hospitalization, Disabling, Other)
  Sender: MYLAN
  Company Number: None

PATIENT
  Age: 60 Year
  Sex: Male

DRUGS (2)
  1. PHENYTOIN [Suspect]
     Active Substance: PHENYTOIN
     Indication: Epilepsy
     Dosage: 100 MILLIGRAM, QID (FOUR TIMES DAILY)
  2. PROCHLORPERAZINE [Concomitant]
     Active Substance: PROCHLORPERAZINE
     Indication: Vertigo positional

REACTIONS (11)
  - Neurotoxicity [Recovering/Resolving]
  - Medication error [Unknown]
  - Fall [Unknown]
  - Dysdiadochokinesis [Unknown]
  - Dysarthria [Unknown]
  - Confusional state [Unknown]
  - Ataxia [Unknown]
  - Confabulation [Unknown]
  - Toxicity to various agents [Unknown]
  - Nystagmus [Unknown]
  - Vertigo [Unknown]

NARRATIVE: CASE EVENT DATE: 20250406
